FAERS Safety Report 9211104 (Version 1)
Quarter: 2013Q2

REPORT INFORMATION
  Report Type: Spontaneous
  Country: US (occurrence: US)
  Receive Date: 20130404
  Receipt Date: 20130404
  Transmission Date: 20140414
  Serious: Yes (Other)
  Sender: FDA-Public Use
  Company Number: US-WATSON-2013-05579

PATIENT
  Age: 35 Year
  Sex: Male
  Weight: 113 kg

DRUGS (2)
  1. FENTANYL [Suspect]
     Indication: BACK PAIN
     Dosage: 25MCG, ONE PATCH EVERY THREE DAYS
     Route: 062
     Dates: start: 20130320
  2. MORPHINE SULFATE [Concomitant]
     Indication: BREAKTHROUGH PAIN
     Dosage: ER 15MG, ONE TABLET EVERY EIGHTS HOURS AS NEEDED
     Route: 048
     Dates: start: 20130122

REACTIONS (7)
  - Depressed level of consciousness [Recovered/Resolved]
  - Slow speech [Recovered/Resolved]
  - Disturbance in attention [Recovered/Resolved]
  - Somnolence [Recovered/Resolved]
  - Dizziness [Recovered/Resolved]
  - Vomiting [Recovered/Resolved]
  - Pruritus generalised [Recovered/Resolved]
